FAERS Safety Report 18129836 (Version 1)
Quarter: 2020Q3

REPORT INFORMATION
  Report Type: Spontaneous
  Country: US (occurrence: US)
  Receive Date: 20200807
  Receipt Date: 20200807
  Transmission Date: 20201103
  Serious: Yes (Hospitalization)
  Sender: FDA-Public Use
  Company Number: None

PATIENT
  Sex: Female

DRUGS (11)
  1. LOSARTAN POT [Concomitant]
     Active Substance: LOSARTAN POTASSIUM
  2. PROMETHAZINE [Concomitant]
     Active Substance: PROMETHAZINE HYDROCHLORIDE
  3. INTRACTABLE [Concomitant]
  4. NALTREXONE [Concomitant]
     Active Substance: NALTREXONE
  5. ENBREL [Suspect]
     Active Substance: ETANERCEPT
     Indication: ANKYLOSING SPONDYLITIS
     Route: 058
     Dates: start: 20200321
  6. KETOROLAC [Concomitant]
     Active Substance: KETOROLAC TROMETHAMINE
  7. NAPROXEN. [Concomitant]
     Active Substance: NAPROXEN
  8. AIMOVIG [Concomitant]
     Active Substance: ERENUMAB-AOOE
  9. W/O STAT MIGR [Concomitant]
  10. GLUCOSAMINE [Concomitant]
     Active Substance: GLUCOSAMINE
  11. CHRONIC MIGRAINE W/O AURA [Concomitant]

REACTIONS (1)
  - Fatigue [None]
